FAERS Safety Report 17066675 (Version 1)
Quarter: 2019Q4

REPORT INFORMATION
  Report Type: Spontaneous
  Country: ES (occurrence: ES)
  Receive Date: 20191122
  Receipt Date: 20191122
  Transmission Date: 20200122
  Serious: Yes (Hospitalization)
  Sender: FDA-Public Use
  Company Number: ES-MYLANLABS-2019M1113342

PATIENT
  Age: 34 Year
  Sex: Female

DRUGS (3)
  1. ENANTYUM [Suspect]
     Active Substance: DEXKETOPROFEN TROMETAMOL
     Indication: ANALGESIC THERAPY
     Dosage: 25 MILLIGRAM, Q3D
     Dates: start: 20180823, end: 20180917
  2. ZINNAT                             /00454602/ [Suspect]
     Active Substance: CEFUROXIME SODIUM
     Indication: BIOPSY MUSCLE
     Dosage: 500 MILLIGRAM, QOD (1000 MG)
     Dates: start: 20180823, end: 20180917
  3. TRAMADOL. [Suspect]
     Active Substance: TRAMADOL
     Indication: ANALGESIC THERAPY
     Dosage: 300 MILLIGRAM, QD
     Dates: start: 20180913, end: 20180917

REACTIONS (3)
  - Dizziness [Recovered/Resolved]
  - Headache [Recovered/Resolved]
  - Balance disorder [Recovered/Resolved]

NARRATIVE: CASE EVENT DATE: 20180917
